FAERS Safety Report 13916320 (Version 1)
Quarter: 2017Q3

REPORT INFORMATION
  Report Type: Report from Study
  Country: US (occurrence: US)
  Receive Date: 20170829
  Receipt Date: 20170829
  Transmission Date: 20171127
  Serious: Yes (Death)
  Sender: FDA-Public Use
  Company Number: US-PFIZER INC-2017364560

PATIENT

DRUGS (2)
  1. DOXORUBICIN HCL [Suspect]
     Active Substance: DOXORUBICIN HYDROCHLORIDE
     Indication: T-CELL LYMPHOMA REFRACTORY
     Dosage: 15 MG/M2, CYCLIC (1 AND 8 EVERY 21 DAYS, OR DAYS 1 AND 15 EVERY 28 DAYS)
  2. GEMCITABINE HYDROCHLORIDE. [Suspect]
     Active Substance: GEMCITABINE HYDROCHLORIDE
     Indication: T-CELL LYMPHOMA REFRACTORY
     Dosage: 1000 MG/M2, CYCLIC (ON DAYS 1 AND 8 EVERY 21 DAYS, OR DAYS 1 AND 15 EVERY 28 DAYS)

REACTIONS (1)
  - Pneumonitis [Fatal]
